FAERS Safety Report 10405615 (Version 1)
Quarter: 2014Q3

REPORT INFORMATION
  Report Type: Spontaneous
  Country: FR (occurrence: FR)
  Receive Date: 20140825
  Receipt Date: 20140825
  Transmission Date: 20150326
  Serious: Yes (Hospitalization, Other)
  Sender: FDA-Public Use
  Company Number: FR-BEH-2014044591

PATIENT
  Age: 62 Year
  Sex: Male

DRUGS (6)
  1. HYTACAND [Concomitant]
     Active Substance: CANDESARTAN CILEXETIL\HYDROCHLOROTHIAZIDE
     Dosage: TREATMENT FOR LONG PERIOD
     Route: 048
  2. HIZENTRA [Suspect]
     Active Substance: HUMAN IMMUNOGLOBULIN G
     Dosage: 200 MG/ML, START DATE: ??-JUL-2012
     Route: 058
  3. CYMBALTA [Concomitant]
     Active Substance: DULOXETINE HYDROCHLORIDE
     Dosage: HARD GASTRO-RESISTANT CAPSULES, TREATMENT FOR LONG PERIOD, START DATE: ??-JUL-2012
     Route: 048
  4. OMEPRAZOLE. [Concomitant]
     Active Substance: OMEPRAZOLE
     Dosage: TREATMENT FOR LONG PERIOD
  5. AMLODIPINE [Concomitant]
     Active Substance: AMLODIPINE BESYLATE
     Dosage: TREATMENT FOR LONG PERIOD
  6. TRANDATE 200 MG [Concomitant]
     Dosage: COATED TABLET, TREATMENT FOR LONG PERIOD
     Route: 048

REACTIONS (3)
  - Arthritis [Unknown]
  - Alcoholism [Unknown]
  - Dysgeusia [Unknown]
